FAERS Safety Report 7166381-3 (Version None)
Quarter: 2010Q4

REPORT INFORMATION
  Report Type: 
  Country: None (occurrence: None)
  Receive Date: 20101216
  Receipt Date: 20101203
  Transmission Date: 20110411
  Serious: Yes (Hospitalization, Other)
  Sender: FDA-Public Use
  Company Number: US-ELI_LILLY_AND_COMPANY-US201010007174

PATIENT
  Sex: Female

DRUGS (11)
  1. FORTEO [Suspect]
     Indication: OSTEOPOROSIS
     Dosage: 20 UG, DAILY (1/D)
  2. FERROUS SULFATE [Concomitant]
     Dosage: 325 MG, DAILY (1/D)
  3. CARDIZEM [Concomitant]
     Dosage: 90 MG, 2/D
  4. CLONIDINE [Concomitant]
     Dosage: 0.1 MG, 2/D
  5. COLACE [Concomitant]
     Dosage: UNK, AS NEEDED
  6. LEXAPRO [Concomitant]
     Dosage: 20 MG, DAILY (1/D)
  7. MAGNESIUM OXIDE [Concomitant]
     Dosage: 800 MG, 2/D
  8. PRILOSEC [Concomitant]
     Dosage: 40 MG, EACH MORNING
  9. CALCIUM WITH VITAMIN D [Concomitant]
  10. VITAMIN D3 [Concomitant]
     Dosage: UNK, 2/D
  11. IBUPROFEN [Concomitant]
     Indication: ARTHRITIS

REACTIONS (8)
  - ARTHRALGIA [None]
  - COLOSTOMY [None]
  - DIARRHOEA HAEMORRHAGIC [None]
  - FACIAL BONES FRACTURE [None]
  - FALL [None]
  - GASTROINTESTINAL HAEMORRHAGE [None]
  - HAEMOGLOBIN DECREASED [None]
  - LOSS OF CONSCIOUSNESS [None]
